FAERS Safety Report 9361397 (Version 2)
Quarter: 2013Q3

REPORT INFORMATION
  Report Type: Spontaneous
  Country: US (occurrence: US)
  Receive Date: 20130621
  Receipt Date: 20130723
  Transmission Date: 20140515
  Serious: Yes (Hospitalization, Other)
  Sender: FDA-Public Use
  Company Number: US-BIOGENIDEC-2013BI053451

PATIENT
  Age: 65 Year
  Sex: Male

DRUGS (6)
  1. TYSABRI [Suspect]
     Indication: MULTIPLE SCLEROSIS
     Route: 042
     Dates: start: 20120621, end: 20130430
  2. HUMALOG INSULIN [Concomitant]
  3. MULTIVITAMIN [Concomitant]
  4. VITAMIN D [Concomitant]
  5. ACETAMINOPHEN [Concomitant]
  6. ARTIFICIAL TEARS [Concomitant]

REACTIONS (13)
  - Multiple sclerosis [Unknown]
  - Lung cancer metastatic [Unknown]
  - Hyperaesthesia [Unknown]
  - Pruritus [Unknown]
  - Insomnia [Unknown]
  - Stress [Unknown]
  - Headache [Unknown]
  - Hepatic function abnormal [Unknown]
  - Thrombocytopenia [Unknown]
  - Urinary retention [Unknown]
  - Benign prostatic hyperplasia [Unknown]
  - Mental status changes [Unknown]
  - Constipation [Unknown]
